FAERS Safety Report 5557108-7 (Version None)
Quarter: 2007Q4

REPORT INFORMATION
  Report Type: 
  Country: None (occurrence: None)
  Receive Date: 20071211
  Receipt Date: 20071127
  Transmission Date: 20080405
  Serious: Yes (Death)
  Sender: FDA-Public Use
  Company Number: 021220

PATIENT

DRUGS (2)
  1. NORDETTE-28 [Suspect]
     Indication: ORAL CONTRACEPTION
     Dosage: ORAL
     Route: 048
  2. PREDNISONE [Concomitant]

REACTIONS (8)
  - CONDITION AGGRAVATED [None]
  - DYSPNOEA [None]
  - LUNG INFILTRATION [None]
  - MYOCARDITIS [None]
  - SEPSIS [None]
  - SYSTEMIC LUPUS ERYTHEMATOSUS [None]
  - URINARY SEDIMENT PRESENT [None]
  - VASCULITIC RASH [None]
